FAERS Safety Report 7570871-9 (Version None)
Quarter: 2011Q2

REPORT INFORMATION
  Report Type: 
  Country: None (occurrence: None)
  Receive Date: 20110624
  Receipt Date: 20110613
  Transmission Date: 20111010
  Serious: Yes (Other)
  Sender: FDA-Public Use
  Company Number: US-PFIZER INC-2011129905

PATIENT
  Sex: Female

DRUGS (2)
  1. PRISTIQ [Suspect]
     Dosage: 50 MG
  2. SEROQUEL [Suspect]
     Dosage: UNK

REACTIONS (3)
  - RENAL INJURY [None]
  - CYSTITIS [None]
  - AGITATION [None]
